FAERS Safety Report 7988069-9 (Version None)
Quarter: 2011Q4

REPORT INFORMATION
  Report Type: 
  Country: None (occurrence: None)
  Receive Date: 20111216
  Receipt Date: 20110527
  Transmission Date: 20120403
  Serious: No
  Sender: FDA-Public Use
  Company Number: US-BRISTOL-MYERS SQUIBB COMPANY-15785447

PATIENT
  Age: 62 Year
  Sex: Male

DRUGS (4)
  1. ABILIFY [Suspect]
     Indication: MAJOR DEPRESSION
     Dosage: INITIATED AT 5MG QD FOR 2 WEEKS AND DOSE INCREASED TO 10MG QD FOR 2 WEEKS(4 WEEKS)
  2. WELLBUTRIN [Suspect]
     Dosage: 2-3 DAYS
  3. STRATTERA [Concomitant]
     Dosage: DECREASED TO 40MG QD
  4. LAMICTAL [Concomitant]
     Indication: MAJOR DEPRESSION

REACTIONS (3)
  - STARING [None]
  - TARDIVE DYSKINESIA [None]
  - DYSTONIA [None]
